FAERS Safety Report 4861126-1 (Version None)
Quarter: 2005Q4

REPORT INFORMATION
  Report Type: 
  Country: None (occurrence: None)
  Receive Date: 20051216
  Receipt Date: 20051206
  Transmission Date: 20060501
  Serious: Yes (Death)
  Sender: FDA-Public Use
  Company Number: USA0511112312

PATIENT
  Sex: Female

DRUGS (1)
  1. ZYPREXA [Suspect]
     Indication: PARANOIA
     Dosage: 10 MG, DAILY (1/D), ORAL
     Route: 048
     Dates: start: 20030101

REACTIONS (1)
  - DEMENTIA ALZHEIMER'S TYPE [None]
